FAERS Safety Report 6282195-0 (Version None)
Quarter: 2009Q3

REPORT INFORMATION
  Report Type: 
  Country: None (occurrence: None)
  Receive Date: 20090721
  Receipt Date: 20090721
  Transmission Date: 20100115
  Serious: Yes (Life-Threatening, Hospitalization)
  Sender: FDA-Public Use
  Company Number: None

PATIENT
  Age: 52 Year
  Sex: Male
  Weight: 91.6 kg

DRUGS (2)
  1. BUPROPION HCL [Suspect]
     Indication: SMOKING CESSATION THERAPY
     Dosage: 150 MG BID PO
     Route: 048
     Dates: start: 20080506, end: 20080707
  2. TRAMADOL HCL [Suspect]
     Indication: BACK PAIN
     Dosage: 50-100 MG TID PO
     Route: 048
     Dates: start: 20080505, end: 20080707

REACTIONS (5)
  - DRUG ABUSE [None]
  - GRAND MAL CONVULSION [None]
  - INCORRECT DOSE ADMINISTERED [None]
  - LOSS OF CONSCIOUSNESS [None]
  - ROAD TRAFFIC ACCIDENT [None]
